FAERS Safety Report 21755103 (Version 2)
Quarter: 2022Q4

REPORT INFORMATION
  Report Type: Spontaneous
  Country: US (occurrence: US)
  Receive Date: 20221220
  Receipt Date: 20221220
  Transmission Date: 20230113
  Serious: No
  Sender: FDA-Public Use
  Company Number: US-RECKITT BENCKISER HEALTHCARE INT LIMITED-RB-090130-2022

PATIENT
  Age: 18 Year
  Sex: Male
  Weight: 150 kg

DRUGS (1)
  1. DELSYM [Suspect]
     Active Substance: DEXTROMETHORPHAN
     Indication: Product used for unknown indication
     Dosage: UNK, SINGLE
     Route: 048
     Dates: start: 20220422

REACTIONS (7)
  - Visual impairment [Recovered/Resolved]
  - Disorientation [Recovered/Resolved]
  - Thirst [Recovering/Resolving]
  - Dry mouth [Recovering/Resolving]
  - Confusional state [Recovered/Resolved]
  - Fatigue [Not Recovered/Not Resolved]
  - Dizziness [Recovered/Resolved]

NARRATIVE: CASE EVENT DATE: 20220422
